FAERS Safety Report 18297610 (Version 7)
Quarter: 2021Q3

REPORT INFORMATION
  Report Type: Report from Study
  Country: US (occurrence: US)
  Receive Date: 20200923
  Receipt Date: 20210907
  Transmission Date: 20211014
  Serious: No
  Sender: FDA-Public Use
  Company Number: NVSC2020US258394

PATIENT
  Sex: Female

DRUGS (2)
  1. COSENTYX [Suspect]
     Active Substance: SECUKINUMAB
     Dosage: UNK UNK, UNKNOWN (BENEATH THE SKIN, USUALLY VIA INJECTION)
     Route: 058
  2. COSENTYX [Suspect]
     Active Substance: SECUKINUMAB
     Indication: PSORIASIS
     Dosage: UNK UNK, UNKNOWN
     Route: 058

REACTIONS (7)
  - Nausea [Recovered/Resolved]
  - Musculoskeletal chest pain [Unknown]
  - Rhinorrhoea [Recovered/Resolved]
  - Contusion [Unknown]
  - Weight increased [Unknown]
  - Arthralgia [Unknown]
  - Nasopharyngitis [Unknown]
